FAERS Safety Report 9424351 (Version 1)
Quarter: 2013Q3

REPORT INFORMATION
  Report Type: Spontaneous
  Country: NZ (occurrence: NZ)
  Receive Date: 20130729
  Receipt Date: 20130729
  Transmission Date: 20140515
  Serious: Yes (Life-Threatening, Other)
  Sender: FDA-Public Use
  Company Number: NZ-ELI_LILLY_AND_COMPANY-NZ201305005552

PATIENT
  Age: 65 Year
  Sex: Male

DRUGS (5)
  1. ZYPREXA RELPREVV [Suspect]
     Indication: SCHIZOPHRENIA
     Dosage: 405 MG, MONTHLY (1/M)
     Route: 030
     Dates: start: 201203
  2. ZYPREXA RELPREVV [Suspect]
     Dosage: 300 MG, 2/M
     Route: 030
     Dates: start: 2012
  3. ZYPREXA RELPREVV [Suspect]
     Dosage: 210 MG, 2/M
     Route: 030
  4. HALOPERIDOL [Concomitant]
     Indication: SCHIZOAFFECTIVE DISORDER
     Dosage: 2 MG, EACH EVENING
  5. SODIUM VALPROATE [Concomitant]

REACTIONS (1)
  - Hypertension [Recovered/Resolved]
